FAERS Safety Report 8512595-7 (Version None)
Quarter: 2012Q3

REPORT INFORMATION
  Report Type: 
  Country: None (occurrence: None)
  Receive Date: 20120716
  Receipt Date: 20120625
  Transmission Date: 20120928
  Serious: No
  Sender: FDA-Public Use
  Company Number: US-ASTRAZENECA-2012SE42803

PATIENT
  Age: 75 Year
  Sex: Female
  Weight: 80.7 kg

DRUGS (1)
  1. PRILOSEC [Suspect]
     Indication: GASTROOESOPHAGEAL REFLUX DISEASE
     Route: 048
     Dates: start: 20070601

REACTIONS (2)
  - COUGH [None]
  - INTENTIONAL DRUG MISUSE [None]
